FAERS Safety Report 11442995 (Version 1)
Quarter: 2015Q3

REPORT INFORMATION
  Report Type: Spontaneous
  Country: US (occurrence: US)
  Receive Date: 20150901
  Receipt Date: 20150901
  Transmission Date: 20151125
  Serious: Yes (Hospitalization, Other)
  Sender: FDA-Public Use
  Company Number: US-PFIZER INC-2015283126

PATIENT
  Age: 27 Year
  Sex: Male
  Weight: 73 kg

DRUGS (6)
  1. PROPANOLOL [Suspect]
     Active Substance: PROPRANOLOL HYDROCHLORIDE
     Indication: ANXIETY
     Dosage: 20 MG, 2X/DAY
     Route: 048
  2. PREGABALIN. [Suspect]
     Active Substance: PREGABALIN
     Indication: NEURALGIA
     Dosage: 50 MG, 3 OR 4 TIMES A DAY
     Route: 048
  3. DIAZEPAM. [Suspect]
     Active Substance: DIAZEPAM
     Dosage: UNK
  4. MORPHINE SULFATE. [Suspect]
     Active Substance: MORPHINE SULFATE
     Indication: PAIN
     Dosage: 30 MG, UNK
     Route: 048
  5. OXYCODONE [Suspect]
     Active Substance: OXYCODONE
     Dosage: UNK
  6. GABAPENTIN. [Suspect]
     Active Substance: GABAPENTIN
     Dosage: UNK

REACTIONS (13)
  - Chromaturia [Unknown]
  - Feeling abnormal [Unknown]
  - Loss of consciousness [Unknown]
  - Renal failure [Unknown]
  - Pulmonary thrombosis [Unknown]
  - Thinking abnormal [Unknown]
  - Overdose [Unknown]
  - Suicide attempt [Unknown]
  - Suicidal ideation [Unknown]
  - Hepatic failure [Unknown]
  - Intentional product misuse [Unknown]
  - Vision blurred [Unknown]
  - Memory impairment [Unknown]
